FAERS Safety Report 13211344 (Version 2)
Quarter: 2017Q1

REPORT INFORMATION
  Report Type: Spontaneous
  Country: US (occurrence: US)
  Receive Date: 20170210
  Receipt Date: 20170323
  Transmission Date: 20170428
  Serious: No
  Sender: FDA-Public Use
  Company Number: US-PFIZER INC-2017058469

PATIENT
  Age: 8 Year
  Sex: Male
  Weight: 29 kg

DRUGS (2)
  1. GENOTROPIN MQ [Suspect]
     Active Substance: SOMATROPIN
     Indication: GROWTH RETARDATION
     Dosage: 14 MG INJECTION EVERY NIGHT IN ARMS, LEGS, OR BUTT
  2. GENOTROPIN [Suspect]
     Active Substance: SOMATROPIN
     Indication: GROWTH RETARDATION

REACTIONS (3)
  - Drug dose omission [Not Recovered/Not Resolved]
  - Drug dispensing error [Unknown]
  - Asthenia [Unknown]

NARRATIVE: CASE EVENT DATE: 201604
